FAERS Safety Report 4787801-5 (Version None)
Quarter: 2005Q4

REPORT INFORMATION
  Report Type: 
  Country: None (occurrence: None)
  Receive Date: 20051004
  Receipt Date: 20041222
  Transmission Date: 20060501
  Serious: Yes (Hospitalization, Disabling)
  Sender: FDA-Public Use
  Company Number: DE-MERCK-0412DEU00210

PATIENT
  Age: 76 Year
  Sex: Male

DRUGS (3)
  1. VIOXX [Suspect]
     Indication: ARTHRALGIA
     Route: 048
     Dates: start: 20020101, end: 20031201
  2. GINKGO BILOBA EXTRACT [Concomitant]
     Route: 065
  3. DICLOFENAC RESINATE [Concomitant]
     Route: 065
     Dates: start: 20020901

REACTIONS (9)
  - ARRHYTHMIA [None]
  - CAROTID ARTERY STENOSIS [None]
  - CEREBELLAR ATROPHY [None]
  - CEREBRAL ATROPHY [None]
  - HEART RATE IRREGULAR [None]
  - NECK PAIN [None]
  - THYROID NEOPLASM [None]
  - ULNAR NERVE INJURY [None]
  - VERTEBRAL ARTERY OCCLUSION [None]
